FAERS Safety Report 5087879-8 (Version None)
Quarter: 2006Q3

REPORT INFORMATION
  Report Type: 
  Country: None (occurrence: None)
  Receive Date: 20060821
  Receipt Date: 20060821
  Transmission Date: 20061208
  Serious: Yes (Hospitalization)
  Sender: FDA-Public Use
  Company Number: None

PATIENT
  Sex: Male
  Weight: 64.1 kg

DRUGS (2)
  1. DOCETAXEL - 35MG/M2 IV BOLUS [Suspect]
     Indication: OESOPHAGEAL CARCINOMA
     Dosage: 35MG/M2 IV BOLUS
     Route: 040
     Dates: start: 20051230, end: 20060804
  2. BEVACIZUMAB - 5 MG/KG IV BOLUS [Suspect]
     Dosage: 5 MG/KG IV BOLUS
     Route: 040
     Dates: start: 20051230, end: 20060804

REACTIONS (9)
  - ABDOMINAL DISTENSION [None]
  - ABDOMINAL PAIN [None]
  - CONSTIPATION [None]
  - DYSPNOEA [None]
  - INTESTINAL OBSTRUCTION [None]
  - METASTASES TO LARGE INTESTINE [None]
  - PNEUMONIA BACTERIAL [None]
  - PULMONARY OEDEMA [None]
  - WOUND DEHISCENCE [None]
